FAERS Safety Report 8856077 (Version 1)
Quarter: 2012Q4

REPORT INFORMATION
  Report Type: Spontaneous
  Country: US (occurrence: None)
  Receive Date: 20121022
  Receipt Date: 20121022
  Transmission Date: 20130627
  Serious: Yes (Other)
  Sender: FDA-Public Use
  Company Number: None

PATIENT
  Age: 53 Year
  Sex: Female
  Weight: 90.72 kg

DRUGS (2)
  1. VICTOZA [Suspect]
     Indication: TYPE 2 DIABETES MELLITUS
     Dosage: 0.6 mg injection QD sq
     Route: 058
     Dates: start: 20111130, end: 20120530
  2. ACTOPLUSMET [Concomitant]

REACTIONS (2)
  - Urticaria [None]
  - Injection site dermatitis [None]
